FAERS Safety Report 5534197-7 (Version None)
Quarter: 2007Q4

REPORT INFORMATION
  Report Type: 
  Country: None (occurrence: None)
  Receive Date: 20071130
  Receipt Date: 20071130
  Transmission Date: 20080405
  Serious: No
  Sender: FDA-Public Use
  Company Number: None

PATIENT
  Age: 12 Year
  Sex: Female
  Weight: 40.8237 kg

DRUGS (1)
  1. SUDAFED PE 10 MG PFIZER CONSUMER HEALTH GROUP [Suspect]
     Dosage: 10 MG Q 12 HOURS PO  -1 DOSE-
     Route: 048
     Dates: start: 20071108, end: 20071108

REACTIONS (2)
  - INCORRECT DOSE ADMINISTERED [None]
  - PHARMACEUTICAL PRODUCT COMPLAINT [None]
